FAERS Safety Report 8182893-8 (Version None)
Quarter: 2012Q1

REPORT INFORMATION
  Report Type: 
  Country: None (occurrence: None)
  Receive Date: 20120305
  Receipt Date: 20120224
  Transmission Date: 20120608
  Serious: Yes (Hospitalization)
  Sender: FDA-Public Use
  Company Number: US-BRISTOL-MYERS SQUIBB COMPANY-16418691

PATIENT
  Age: 62 Year
  Sex: Male
  Weight: 72 kg

DRUGS (8)
  1. SPIRIVA [Concomitant]
  2. PERCOCET [Concomitant]
  3. GEMCITABINE HYDROCHLORIDE [Suspect]
     Indication: NON-SMALL CELL LUNG CANCER
     Dosage: LASTDOSE:31JAN12 DOSAGE: ON DAYS 1 AND 8 OF 3WEEK CYCLE
     Route: 042
     Dates: start: 20120124
  4. RAMUCIRUMAB [Suspect]
     Indication: NON-SMALL CELL LUNG CANCER
     Dosage: LIQUID
     Route: 042
     Dates: start: 20120124
  5. ADVAIR DISKUS 100/50 [Concomitant]
  6. EXCEDRIN [Concomitant]
  7. CARBOPLATIN [Suspect]
     Indication: NON-SMALL CELL LUNG CANCER
     Dosage: AUC = 5 LAST DOSE:24JAN12 DOSAGE: ON DAY 1 OF 3WEEK CYCLE
     Route: 042
     Dates: start: 20120124
  8. HYZAAR [Concomitant]

REACTIONS (7)
  - DYSPNOEA [None]
  - PLATELET COUNT DECREASED [None]
  - LEFT VENTRICULAR DYSFUNCTION [None]
  - FATIGUE [None]
  - WHITE BLOOD CELL COUNT DECREASED [None]
  - NEUTROPHIL COUNT DECREASED [None]
  - ANAEMIA [None]
